FAERS Safety Report 9564208 (Version 3)
Quarter: 2013Q4

REPORT INFORMATION
  Report Type: Spontaneous
  Country: US (occurrence: US)
  Receive Date: 20130930
  Receipt Date: 20131024
  Transmission Date: 20140711
  Serious: Yes (Hospitalization, Disabling, Other)
  Sender: FDA-Public Use
  Company Number: US-009507513-1309USA010845

PATIENT
  Age: 89 Year
  Sex: Male

DRUGS (2)
  1. TICE BCG LIVE [Suspect]
     Indication: BLADDER CANCER
     Dosage: 50 ML ONCE WEEKLY FOR 7 WEEKS
     Route: 043
     Dates: start: 20130116, end: 201302
  2. TICE BCG LIVE [Suspect]
     Dosage: 50 ML, WEEKLY FOR 7 WEEKS
     Route: 043
     Dates: start: 20130227, end: 20130227

REACTIONS (2)
  - Osteomyelitis [Recovering/Resolving]
  - Pneumonia [Unknown]
